FAERS Safety Report 6393556-3 (Version None)
Quarter: 2009Q4

REPORT INFORMATION
  Report Type: 
  Country: None (occurrence: None)
  Receive Date: 20091008
  Receipt Date: 20091005
  Transmission Date: 20100525
  Serious: Yes (Other)
  Sender: FDA-Public Use
  Company Number: B0596809A

PATIENT
  Age: 26 Year
  Sex: Female

DRUGS (1)
  1. RELENZA [Suspect]
     Route: 065

REACTIONS (1)
  - INTRA-UTERINE DEATH [None]
